FAERS Safety Report 8022834-7 (Version None)
Quarter: 2012Q1

REPORT INFORMATION
  Report Type: 
  Country: None (occurrence: None)
  Receive Date: 20120104
  Receipt Date: 20111226
  Transmission Date: 20120608
  Serious: Yes (Other)
  Sender: FDA-Public Use
  Company Number: JP-ROCHE-1025857

PATIENT
  Age: 75 Year
  Sex: Male

DRUGS (3)
  1. ROCEPHIN [Suspect]
     Indication: BRONCHITIS
     Route: 041
  2. ROCEPHIN [Suspect]
     Indication: PNEUMONIA
     Route: 041
  3. ROCEPHIN [Suspect]
     Indication: PLEURISY
     Route: 041

REACTIONS (2)
  - BILE DUCT STONE [None]
  - CHOLANGITIS ACUTE [None]
